FAERS Safety Report 7283656-8 (Version None)
Quarter: 2011Q1

REPORT INFORMATION
  Report Type: 
  Country: None (occurrence: None)
  Receive Date: 20110204
  Receipt Date: 20110204
  Transmission Date: 20110831
  Serious: No
  Sender: FDA-Public Use
  Company Number: None

PATIENT
  Age: 77 Year
  Sex: Female
  Weight: 65.7716 kg

DRUGS (2)
  1. LEVAQUIN [Suspect]
     Indication: BACTERIAL INFECTION
     Dosage: 1 TABLET DAILY MOUTH
     Route: 048
     Dates: start: 20101110, end: 20101117
  2. LEVAQUIN [Suspect]
     Indication: BRONCHITIS
     Dosage: 1 TABLET DAILY MOUTH
     Route: 048
     Dates: start: 20101110, end: 20101117

REACTIONS (5)
  - SLEEP DISORDER [None]
  - CHEST PAIN [None]
  - CONTUSION [None]
  - FATIGUE [None]
  - CONFUSIONAL STATE [None]
